FAERS Safety Report 13226080 (Version 3)
Quarter: 2017Q1

REPORT INFORMATION
  Report Type: Report from Study
  Country: US (occurrence: US)
  Receive Date: 20170213
  Receipt Date: 20170301
  Transmission Date: 20170428
  Serious: Yes (Hospitalization)
  Sender: FDA-Public Use
  Company Number: US-JNJFOC-20170208581

PATIENT
  Age: 65 Year
  Sex: Female

DRUGS (32)
  1. SIMPONI ARIA [Suspect]
     Active Substance: GOLIMUMAB
     Indication: RHEUMATOID ARTHRITIS
     Dosage: 244.5 MG
     Route: 042
     Dates: start: 20161013
  2. VOLTAREN [Concomitant]
     Active Substance: DICLOFENAC SODIUM
     Indication: OSTEOARTHRITIS
     Route: 061
     Dates: start: 20130410
  3. METHYLPREDNISOLONE. [Concomitant]
     Active Substance: METHYLPREDNISOLONE
     Dosage: PRN (AS NEEDED)
     Route: 048
     Dates: start: 20160722, end: 20160727
  4. BACTRIM [Concomitant]
     Active Substance: SULFAMETHOXAZOLE\TRIMETHOPRIM
     Route: 048
     Dates: start: 20160729, end: 20160809
  5. BACLOFEN. [Concomitant]
     Active Substance: BACLOFEN
     Indication: PAIN
     Route: 048
     Dates: start: 20121218
  6. PIROXICAM. [Concomitant]
     Active Substance: PIROXICAM
     Indication: PAIN
     Route: 048
     Dates: start: 20121218
  7. ZOLOFT [Concomitant]
     Active Substance: SERTRALINE HYDROCHLORIDE
     Indication: DEPRESSION
     Route: 048
     Dates: start: 20130410
  8. LIDOCAINE. [Concomitant]
     Active Substance: LIDOCAINE
     Route: 014
     Dates: start: 20161017, end: 20161017
  9. KENALOG [Concomitant]
     Active Substance: TRIAMCINOLONE ACETONIDE
     Route: 014
     Dates: start: 20160816, end: 20160816
  10. KENALOG [Concomitant]
     Active Substance: TRIAMCINOLONE ACETONIDE
     Route: 014
     Dates: start: 20161017, end: 20161017
  11. ACETYLSALICYLIC ACID [Concomitant]
     Active Substance: ASPIRIN
     Indication: PROPHYLAXIS
     Route: 048
     Dates: start: 20160816
  12. NEURONTIN [Concomitant]
     Active Substance: GABAPENTIN
     Indication: NEUROPATHY PERIPHERAL
     Route: 048
     Dates: start: 20121218
  13. PROTONIX [Concomitant]
     Active Substance: PANTOPRAZOLE SODIUM
     Indication: GASTROOESOPHAGEAL REFLUX DISEASE
     Route: 048
     Dates: start: 20121218
  14. LIDOCAINE. [Concomitant]
     Active Substance: LIDOCAINE
     Route: 014
     Dates: start: 20160816, end: 20160816
  15. SIMPONI ARIA [Suspect]
     Active Substance: GOLIMUMAB
     Indication: RHEUMATOID ARTHRITIS
     Route: 042
     Dates: start: 20170202
  16. SIMPONI ARIA [Suspect]
     Active Substance: GOLIMUMAB
     Indication: RHEUMATOID ARTHRITIS
     Dosage: 238.0 MG
     Route: 042
     Dates: start: 20161208
  17. SIMPONI ARIA [Suspect]
     Active Substance: GOLIMUMAB
     Indication: RHEUMATOID ARTHRITIS
     Dosage: 256 MG
     Route: 042
     Dates: start: 20160511
  18. LIDOCAINE. [Concomitant]
     Active Substance: LIDOCAINE
     Dosage: ONCE (ONE TIME??INTERVENTION)
     Route: 014
     Dates: start: 20130523, end: 20130523
  19. DEPO-MEDROL [Concomitant]
     Active Substance: METHYLPREDNISOLONE ACETATE
     Dosage: ONCE (ONE TIME INTERVENTION)
     Route: 014
     Dates: start: 20160523, end: 20160523
  20. PLAQUENIL [Concomitant]
     Active Substance: HYDROXYCHLOROQUINE SULFATE
     Route: 048
     Dates: start: 20150403
  21. SULFASALAZINE. [Concomitant]
     Active Substance: SULFASALAZINE
     Route: 048
     Dates: start: 20150803
  22. MIRAPEX [Concomitant]
     Active Substance: PRAMIPEXOLE DIHYDROCHLORIDE
     Indication: RESTLESS LEGS SYNDROME
     Route: 048
     Dates: start: 20150119
  23. FOLIC ACID. [Concomitant]
     Active Substance: FOLIC ACID
     Indication: NUTRITIONAL SUPPLEMENTATION
     Route: 048
     Dates: start: 20140624
  24. SIMPONI ARIA [Suspect]
     Active Substance: GOLIMUMAB
     Indication: RHEUMATOID ARTHRITIS
     Dosage: 248 MG
     Route: 042
     Dates: start: 20160818
  25. SIMPONI ARIA [Suspect]
     Active Substance: GOLIMUMAB
     Indication: RHEUMATOID ARTHRITIS
     Dosage: 252 MG
     Route: 042
     Dates: start: 20160608
  26. LIDOCAINE. [Concomitant]
     Active Substance: LIDOCAINE
     Route: 014
     Dates: start: 20160816, end: 20160816
  27. LIDOCAINE. [Concomitant]
     Active Substance: LIDOCAINE
     Route: 014
     Dates: start: 20160803, end: 20160803
  28. DEPO-MEDROL [Concomitant]
     Active Substance: METHYLPREDNISOLONE ACETATE
     Route: 014
     Dates: start: 20160523, end: 20160523
  29. KENALOG [Concomitant]
     Active Substance: TRIAMCINOLONE ACETONIDE
     Route: 014
     Dates: start: 20160803, end: 20160803
  30. METHOTREXATE. [Concomitant]
     Active Substance: METHOTREXATE
     Route: 030
     Dates: start: 20140624
  31. FUROSEMIDE. [Concomitant]
     Active Substance: FUROSEMIDE
     Indication: FLUID RETENTION
     Route: 048
     Dates: start: 20160119
  32. KENALOG [Concomitant]
     Active Substance: TRIAMCINOLONE ACETONIDE
     Route: 014
     Dates: start: 20160816, end: 20160816

REACTIONS (1)
  - Pneumonia [Recovered/Resolved]

NARRATIVE: CASE EVENT DATE: 20170101
